FAERS Safety Report 12609880 (Version 1)
Quarter: 2016Q3

REPORT INFORMATION
  Report Type: Spontaneous
  Country: US (occurrence: US)
  Receive Date: 20160801
  Receipt Date: 20160801
  Transmission Date: 20161109
  Serious: No
  Sender: FDA-Public Use
  Company Number: US-BAYER-2016-141031

PATIENT
  Age: 64 Year
  Sex: Female
  Weight: 56.68 kg

DRUGS (1)
  1. MIRALAX [Suspect]
     Active Substance: POLYETHYLENE GLYCOL 3350
     Indication: CONSTIPATION
     Dosage: UNK UNK, QD DAILY
     Route: 048

REACTIONS (4)
  - Off label use [None]
  - Abdominal distension [Not Recovered/Not Resolved]
  - Incorrect dose administered [None]
  - Product taste abnormal [None]

NARRATIVE: CASE EVENT DATE: 20160718
